FAERS Safety Report 10530414 (Version 1)
Quarter: 2014Q4

REPORT INFORMATION
  Report Type: Spontaneous
  Country: RO (occurrence: None)
  Receive Date: 20141017
  Receipt Date: 20141017
  Transmission Date: 20150528
  Serious: Yes (Other)
  Sender: FDA-Public Use
  Company Number: FK201404118

PATIENT
  Age: 40 Year
  Sex: Male
  Weight: 80 kg

DRUGS (1)
  1. PACLITAXEL 6MG/ML CONCENTRATE FOR SOLUTION FOR INFUSION (PACLITAXEL) (PACLITAXEL) [Suspect]
     Active Substance: PACLITAXEL
     Indication: LUNG ADENOCARCINOMA STAGE IV
     Route: 042
     Dates: start: 20141002, end: 20141002

REACTIONS (5)
  - Generalised erythema [None]
  - Dyspnoea [None]
  - Cyanosis [None]
  - Hyperhidrosis [None]
  - Rhonchi [None]

NARRATIVE: CASE EVENT DATE: 20141002
